FAERS Safety Report 4613996-X (Version None)
Quarter: 2005Q1

REPORT INFORMATION
  Report Type: 
  Country: None (occurrence: None)
  Receive Date: 20050321
  Receipt Date: 20050307
  Transmission Date: 20050727
  Serious: Yes (Hospitalization)
  Sender: FDA-Public Use
  Company Number: FR-ROCHE-397808

PATIENT
  Age: 49 Year
  Sex: Female

DRUGS (8)
  1. COPEGUS [Suspect]
     Indication: HEPATITIS C
     Route: 048
  2. COPEGUS [Suspect]
     Dosage: DOSE DECREASED BUT NOT SPECIFIED.
     Route: 048
  3. PEGASYS [Suspect]
     Indication: HEPATITIS C
     Route: 058
  4. PEGASYS [Suspect]
     Dosage: DOSE DECREASED BUT NOT SPECIFIED.
     Route: 058
  5. RETROVIR [Concomitant]
     Indication: HIV INFECTION
     Route: 048
     Dates: start: 20020801, end: 20041209
  6. REYATAZ [Concomitant]
     Indication: DRUG USE FOR UNKNOWN INDICATION
     Route: 048
  7. NORVIR [Concomitant]
  8. VIREAD [Concomitant]

REACTIONS (2)
  - JAUNDICE [None]
  - NEUTROPENIA [None]
